FAERS Safety Report 6010893-2 (Version None)
Quarter: 2008Q4

REPORT INFORMATION
  Report Type: 
  Country: None (occurrence: None)
  Receive Date: 20081216
  Receipt Date: 20081209
  Transmission Date: 20090506
  Serious: Yes (Death)
  Sender: FDA-Public Use
  Company Number: US025153

PATIENT
  Sex: Male
  Weight: 83.9154 kg

DRUGS (2)
  1. FENTORA [Suspect]
     Dosage: BUCCAL
     Route: 002
  2. OXYCODONE [Suspect]
     Dates: start: 20070101

REACTIONS (3)
  - PULSE ABSENT [None]
  - SELF-MEDICATION [None]
  - UNRESPONSIVE TO STIMULI [None]
